FAERS Safety Report 10253837 (Version 1)
Quarter: 2014Q2

REPORT INFORMATION
  Report Type: Spontaneous
  Country: US (occurrence: US)
  Receive Date: 20140623
  Receipt Date: 20140623
  Transmission Date: 20141212
  Serious: No
  Sender: FDA-Public Use
  Company Number: US-ZOGENIX, INC.-2011ZX000569

PATIENT
  Age: 38 Year
  Sex: Female
  Weight: 83.99 kg

DRUGS (4)
  1. SUMAVEL DOSEPRO [Suspect]
     Indication: MIGRAINE
  2. FROVA [Concomitant]
     Indication: MIGRAINE
     Route: 048
  3. PHENERGAN [Concomitant]
     Indication: NAUSEA
  4. EXCEDRIN [Concomitant]
     Indication: PRODUCT USED FOR UNKNOWN INDICATION

REACTIONS (3)
  - Miliaria [Recovered/Resolved]
  - Muscle tightness [Recovered/Resolved]
  - Migraine [Recovered/Resolved]
